FAERS Safety Report 6425942-7 (Version None)
Quarter: 2009Q4

REPORT INFORMATION
  Report Type: 
  Country: None (occurrence: None)
  Receive Date: 20091103
  Receipt Date: 20091103
  Transmission Date: 20100525
  Serious: Yes (Hospitalization)
  Sender: FDA-Public Use
  Company Number: None

PATIENT
  Sex: Female
  Weight: 71.2147 kg

DRUGS (4)
  1. YAZ [Suspect]
     Indication: DYSMENORRHOEA
     Dosage: DAILY FOR 21 DAYS, PO
     Route: 048
     Dates: start: 20090308, end: 20090623
  2. YAZ [Suspect]
     Indication: MENORRHAGIA
     Dosage: DAILY FOR 21 DAYS, PO
     Route: 048
     Dates: start: 20090308, end: 20090623
  3. LUTERA NDC#52544-0949-28 [Suspect]
     Indication: DYSMENORRHOEA
     Dosage: DAILY FOR 21 DAYS, PO
     Route: 048
     Dates: start: 20090628, end: 20090813
  4. LUTERA NDC#52544-0949-28 [Suspect]
     Indication: MENORRHAGIA
     Dosage: DAILY FOR 21 DAYS, PO
     Route: 048
     Dates: start: 20090628, end: 20090813

REACTIONS (3)
  - CONDITION AGGRAVATED [None]
  - PREMENSTRUAL SYNDROME [None]
  - PULMONARY THROMBOSIS [None]
